FAERS Safety Report 8582588-2 (Version None)
Quarter: 2012Q3

REPORT INFORMATION
  Report Type: 
  Country: None (occurrence: None)
  Receive Date: 20120809
  Receipt Date: 20120727
  Transmission Date: 20120928
  Serious: Yes (Disabling)
  Sender: FDA-Public Use
  Company Number: DE-ROCHE-1094933

PATIENT
  Age: 78 Year
  Sex: Female
  Weight: 77.4 kg

DRUGS (1)
  1. ZELBORAF [Suspect]
     Indication: MALIGNANT MELANOMA
     Dosage: LAST DOSE PRIOR TO SAE: 27/JUL/2012
     Route: 048
     Dates: start: 20120210

REACTIONS (1)
  - RETINAL ARTERY OCCLUSION [None]
